FAERS Safety Report 10652230 (Version 2)
Quarter: 2015Q2

REPORT INFORMATION
  Report Type: Spontaneous
  Country: US (occurrence: US)
  Receive Date: 20141215
  Receipt Date: 20150430
  Transmission Date: 20150821
  Serious: Yes (Hospitalization, Disabling, Other)
  Sender: FDA-Public Use
  Company Number: US-PFIZER INC-2014340408

PATIENT
  Age: 43 Year
  Sex: Male

DRUGS (11)
  1. TESTOSTERONE CIPIONATE [Suspect]
     Active Substance: TESTOSTERONE
     Indication: LETHARGY
     Dosage: UNK, EVERY 2 WEEKS
     Route: 030
     Dates: end: 201110
  2. DEPO-TESTOSTERONE [Suspect]
     Active Substance: TESTOSTERONE CYPIONATE
     Indication: BLOOD TESTOSTERONE DECREASED
     Dosage: UNK
     Dates: start: 20100720, end: 201110
  3. DEPO-TESTOSTERONE [Suspect]
     Active Substance: TESTOSTERONE CYPIONATE
     Indication: LIBIDO DECREASED
     Dosage: UNK
     Dates: start: 201204
  4. TESTOSTERONE CIPIONATE [Suspect]
     Active Substance: TESTOSTERONE
     Dosage: UNK, EVERY 2 WEEKS
     Route: 030
     Dates: start: 20120718
  5. TESTOSTERONE CIPIONATE [Suspect]
     Active Substance: TESTOSTERONE
     Dosage: UNK, EVERY 2 WEEKS
     Route: 030
     Dates: start: 20120606
  6. TESTOPEL [Suspect]
     Active Substance: TESTOSTERONE
     Indication: BLOOD TESTOSTERONE DECREASED
     Dosage: 10 PELLETS (IMPLANT), UNK
     Dates: start: 20111107
  7. TESTOSTERONE CIPIONATE [Suspect]
     Active Substance: TESTOSTERONE
     Indication: LIBIDO DECREASED
     Dosage: UNK, EVERY 4 WEEKS
     Route: 030
     Dates: start: 20100720
  8. TESTOPEL [Suspect]
     Active Substance: TESTOSTERONE
     Indication: LIBIDO DECREASED
     Dosage: UNK
     Dates: start: 201204
  9. TESTOPEL [Suspect]
     Active Substance: TESTOSTERONE
     Indication: LETHARGY
  10. DEPO-TESTOSTERONE [Suspect]
     Active Substance: TESTOSTERONE CYPIONATE
     Dosage: UNK
     Dates: start: 2012
  11. TESTOSTERONE CIPIONATE [Suspect]
     Active Substance: TESTOSTERONE
     Dosage: UNK, EVERY 2 WEEKS
     Route: 030
     Dates: start: 20120510

REACTIONS (8)
  - Heart injury [Not Recovered/Not Resolved]
  - Anxiety [Unknown]
  - Emotional distress [Not Recovered/Not Resolved]
  - Deep vein thrombosis [Not Recovered/Not Resolved]
  - Panic attack [Unknown]
  - Pulmonary embolism [Unknown]
  - Thrombosis [Unknown]
  - Transient ischaemic attack [Unknown]

NARRATIVE: CASE EVENT DATE: 20120105
